FAERS Safety Report 24877039 (Version 2)
Quarter: 2025Q4

REPORT INFORMATION
  Report Type: Spontaneous
  Country: US (occurrence: US)
  Receive Date: 20250123
  Receipt Date: 20251215
  Transmission Date: 20260117
  Serious: No
  Sender: BIOGEN
  Company Number: US-BIOGEN-2024BI01266971

PATIENT
  Age: 49 Year
  Sex: Female

DRUGS (3)
  1. TYSABRI [Suspect]
     Active Substance: NATALIZUMAB
     Indication: Multiple sclerosis
  2. TYSABRI [Suspect]
     Active Substance: NATALIZUMAB
     Dosage: DOSAGE TEXT:INFUSED OVER 1 HOUR
     Dates: start: 20220825
  3. TYSABRI [Suspect]
     Active Substance: NATALIZUMAB
     Dosage: DOSAGE TEXT:INFUSED OVER 1 HOUR
     Dates: start: 20230718

REACTIONS (3)
  - Migraine [Recovered/Resolved]
  - Prescribed underdose [Unknown]
  - Headache [Unknown]

NARRATIVE: CASE EVENT DATE: 20230718
